FAERS Safety Report 8091766-0 (Version None)
Quarter: 2012Q1

REPORT INFORMATION
  Report Type: 
  Country: None (occurrence: None)
  Receive Date: 20120129
  Receipt Date: 20111114
  Transmission Date: 20120608
  Serious: No
  Sender: FDA-Public Use
  Company Number: US-ABBOTT-11P-163-0874114-00

PATIENT
  Age: 51 Year
  Sex: Female

DRUGS (3)
  1. PENTASA [Concomitant]
     Indication: PRODUCT USED FOR UNKNOWN INDICATION
  2. HUMIRA [Suspect]
     Indication: CROHN'S DISEASE
     Dates: start: 20111105
  3. UNKNOWN PAIN MEDICATION [Concomitant]
     Indication: PRODUCT USED FOR UNKNOWN INDICATION

REACTIONS (5)
  - DIARRHOEA [None]
  - NAUSEA [None]
  - WEIGHT DECREASED [None]
  - ASTHENIA [None]
  - ABDOMINAL PAIN UPPER [None]
